FAERS Safety Report 4377912-0 (Version None)
Quarter: 2004Q2

REPORT INFORMATION
  Report Type: 
  Country: None (occurrence: None)
  Receive Date: 20040616
  Receipt Date: 20040601
  Transmission Date: 20050107
  Serious: Yes (Other)
  Sender: FDA-Public Use
  Company Number: PHEH2004US06091

PATIENT
  Age: 22 Month
  Sex: Female

DRUGS (1)
  1. ELIDEL [Suspect]
     Dosage: UNK, BID
     Route: 061
     Dates: start: 20040509, end: 20040511

REACTIONS (4)
  - LOCAL REACTION [None]
  - STRIDOR [None]
  - SWELLING FACE [None]
  - URTICARIA [None]
